FAERS Safety Report 9375041 (Version 1)
Quarter: 2013Q2

REPORT INFORMATION
  Report Type: Spontaneous
  Country: US (occurrence: US)
  Receive Date: 20130628
  Receipt Date: 20130628
  Transmission Date: 20140414
  Serious: Yes (Death)
  Sender: FDA-Public Use
  Company Number: US-OPTIMER-20130244

PATIENT
  Age: 76 Year
  Sex: Female

DRUGS (1)
  1. FIDAXOMICIN [Suspect]
     Indication: CLOSTRIDIAL INFECTION

REACTIONS (2)
  - Death [Fatal]
  - No therapeutic response [Unknown]
